FAERS Safety Report 4701892-9 (Version None)
Quarter: 2005Q2

REPORT INFORMATION
  Report Type: 
  Country: None (occurrence: None)
  Receive Date: 20050627
  Receipt Date: 20050606
  Transmission Date: 20051028
  Serious: Yes (Hospitalization)
  Sender: FDA-Public Use
  Company Number: ATO-05-0205

PATIENT
  Age: 68 Year
  Weight: 88.09 kg

DRUGS (15)
  1. TRISENOX [Suspect]
     Indication: CHRONIC MYELOID LEUKAEMIA
     Dosage: (0.25 MG/KG,BIW),IVI
     Dates: start: 20040419, end: 20040910
  2. GLEEVEC [Suspect]
     Indication: CHRONIC MYELOID LEUKAEMIA
     Dosage: (800 MG,QD)
     Dates: start: 20000622
  3. PREVACID [Concomitant]
  4. ARANESP [Concomitant]
  5. FERROUS SULFATE [Concomitant]
  6. ASPIRIN [Concomitant]
  7. IMODIUM [Concomitant]
  8. PHOSPHORUS [Concomitant]
  9. MAGNESIUM [Concomitant]
  10. LASIX [Concomitant]
  11. COUMADIN [Concomitant]
  12. VICODIN ES [Concomitant]
  13. NEUPOGEN [Concomitant]
  14. ROCEPHIN [Concomitant]
  15. TUSSIONEX [Concomitant]

REACTIONS (6)
  - ANTIMICROBIAL SUSCEPTIBILITY TEST RESISTANT [None]
  - ARTHRALGIA [None]
  - ARTHRITIS BACTERIAL [None]
  - DRUG INEFFECTIVE [None]
  - SHOULDER PAIN [None]
  - STAPHYLOCOCCAL INFECTION [None]
